FAERS Safety Report 6613823-5 (Version None)
Quarter: 2010Q1

REPORT INFORMATION
  Report Type: 
  Country: None (occurrence: None)
  Receive Date: 20100304
  Receipt Date: 20100302
  Transmission Date: 20100710
  Serious: Yes (Other)
  Sender: FDA-Public Use
  Company Number: US-CEPHALON-2010001196

PATIENT
  Sex: Male

DRUGS (2)
  1. FENTANYL CITRATE [Suspect]
     Indication: SURGERY
     Route: 002
  2. FENTANYL [Concomitant]

REACTIONS (3)
  - CONVULSION [None]
  - MEDICATION ERROR [None]
  - MYOCARDIAL INFARCTION [None]
